FAERS Safety Report 5079876-3 (Version None)
Quarter: 2006Q3

REPORT INFORMATION
  Report Type: 
  Country: None (occurrence: None)
  Receive Date: 20060809
  Receipt Date: 20060728
  Transmission Date: 20061208
  Serious: Yes (Other)
  Sender: FDA-Public Use
  Company Number: 2006US-03159

PATIENT
  Age: 16 Year
  Sex: Female

DRUGS (2)
  1. ISOTRETINOIN [Suspect]
     Dosage: 40 MG, QOD; SEE IMAGE
     Dates: start: 20060130, end: 20060210
  2. ISOTRETINOIN [Suspect]
     Dosage: 40 MG, QOD; SEE IMAGE
     Dates: start: 20060130, end: 20060210

REACTIONS (1)
  - PREGNANCY [None]
